FAERS Safety Report 7694029-8 (Version None)
Quarter: 2011Q3

REPORT INFORMATION
  Report Type: 
  Country: None (occurrence: None)
  Receive Date: 20110819
  Receipt Date: 20110815
  Transmission Date: 20111222
  Serious: Yes (Other)
  Sender: FDA-Public Use
  Company Number: US-ELI_LILLY_AND_COMPANY-US201007007861

PATIENT
  Sex: Male

DRUGS (4)
  1. PREVACID [Concomitant]
  2. BYETTA [Suspect]
     Dosage: UNK
     Dates: start: 20051101, end: 20081101
  3. SIMVASTATIN [Concomitant]
  4. HYDROCHLOROTHIAZIDE [Concomitant]

REACTIONS (2)
  - PANCREATITIS [None]
  - RENAL FAILURE [None]
